FAERS Safety Report 8867769 (Version 1)
Quarter: 2012Q4

REPORT INFORMATION
  Report Type: 
  Country: US (occurrence: US)
  Receive Date: 20121025
  Receipt Date: 20121025
  Transmission Date: 20130627
  Serious: No
  Sender: FDA-Public Use
  Company Number: US-AMGEN-USASP2012018138

PATIENT
  Sex: Female
  Weight: 56.69 kg

DRUGS (8)
  1. ENBREL [Suspect]
     Indication: PRODUCT USED FOR UNKNOWN INDICATION
     Dosage: 50 mg, qwk
  2. GABAPENTIN [Concomitant]
     Dosage: 100 mg, UNK
  3. METHOTREXATE [Concomitant]
     Dosage: 2.5 mg, UNK
  4. FOLIC ACID [Concomitant]
     Dosage: 5 mg, UNK
  5. MULTIVITAMIN                       /00097801/ [Concomitant]
  6. CALCIUM W/VITAMIN D                /00188401/ [Concomitant]
  7. PREDNISONE [Concomitant]
     Dosage: 1 mg, UNK
  8. CELEBREX [Concomitant]
     Dosage: 50 mg, UNK

REACTIONS (3)
  - Carpal tunnel syndrome [Not Recovered/Not Resolved]
  - Injection site pruritus [Unknown]
  - Injection site erythema [Unknown]
